FAERS Safety Report 5089071-X (Version None)
Quarter: 2006Q3

REPORT INFORMATION
  Report Type: 
  Country: None (occurrence: None)
  Receive Date: 20060822
  Receipt Date: 20060801
  Transmission Date: 20061208
  Serious: Yes (Other)
  Sender: FDA-Public Use
  Company Number: DE200608001355

PATIENT
  Sex: Male

DRUGS (6)
  1. FORTEO [Suspect]
     Indication: OSTEOPOROSIS
     Dosage: 20 UNK, DAILY (1/D), SUBCUTANEOUS
     Route: 058
     Dates: start: 20060301, end: 20060706
  2. FORTEO PEN (FORTEO PEN) [Concomitant]
  3. THEOPHYLLAMIN (ETHYLENEDIAMINE, THEOPHYLLINE) [Concomitant]
  4. CORTISOL [Concomitant]
  5. SPIRIVA [Concomitant]
  6. TRAMUNDIN (TRAMADOL HYDROCHLORIDE) [Concomitant]

REACTIONS (6)
  - ANOREXIA [None]
  - BLOOD URIC ACID INCREASED [None]
  - DYSGEUSIA [None]
  - GOUT [None]
  - HEADACHE [None]
  - NAUSEA [None]
